FAERS Safety Report 4684434-6 (Version None)
Quarter: 2005Q2

REPORT INFORMATION
  Report Type: 
  Country: None (occurrence: None)
  Receive Date: 20050531
  Receipt Date: 20050308
  Transmission Date: 20051028
  Serious: Yes (Hospitalization)
  Sender: FDA-Public Use
  Company Number: US_0503114168

PATIENT
  Age: 68 Year
  Sex: Female

DRUGS (2)
  1. ZYPREXA [Suspect]
  2. DIURETIC [Concomitant]

REACTIONS (1)
  - BLOOD SODIUM DECREASED [None]
